FAERS Safety Report 26171168 (Version 1)
Quarter: 2025Q4

REPORT INFORMATION
  Report Type: Spontaneous
  Country: US (occurrence: None)
  Receive Date: 20251217
  Receipt Date: 20251217
  Transmission Date: 20260117
  Serious: Yes (Disabling)
  Sender: FDA-CTU
  Company Number: None

PATIENT
  Age: 32 Year
  Sex: Male

DRUGS (1)
  1. ABILIFY [Suspect]
     Active Substance: ARIPIPRAZOLE

REACTIONS (6)
  - Withdrawal syndrome [None]
  - Insomnia [None]
  - Skin burning sensation [None]
  - Blunted affect [None]
  - Poverty of thought content [None]
  - Movement disorder [None]

NARRATIVE: CASE EVENT DATE: 20231113
